FAERS Safety Report 15362202 (Version 2)
Quarter: 2022Q4

REPORT INFORMATION
  Report Type: Spontaneous
  Country: PL (occurrence: PL)
  Receive Date: 20180907
  Receipt Date: 20221018
  Transmission Date: 20230113
  Serious: Yes (Hospitalization, Other)
  Sender: FDA-Public Use
  Company Number: PL-002147023-PHHY2018PL088768

PATIENT
  Age: 17 Year
  Sex: Female

DRUGS (4)
  1. DICLOFENAC SODIUM [Interacting]
     Active Substance: DICLOFENAC SODIUM
     Indication: Pain
     Dosage: 50 MG, QD
     Route: 065
  2. DICLOFENAC SODIUM [Interacting]
     Active Substance: DICLOFENAC SODIUM
     Dosage: 50 MG, BID
     Route: 065
  3. ACETAMINOPHEN [Interacting]
     Active Substance: ACETAMINOPHEN
     Indication: Pain
     Dosage: 500 MG, TID
     Route: 048
  4. KETOPROFEN [Interacting]
     Active Substance: KETOPROFEN
     Indication: Pain
     Dosage: 100 MG, BID
     Route: 065

REACTIONS (13)
  - Acute kidney injury [Recovering/Resolving]
  - Drug interaction [Unknown]
  - Dry mouth [Recovering/Resolving]
  - Pyrexia [Recovering/Resolving]
  - Condition aggravated [Recovering/Resolving]
  - Pallor [Recovering/Resolving]
  - Respiratory rate increased [Recovering/Resolving]
  - Skin turgor decreased [Recovering/Resolving]
  - Nausea [Recovering/Resolving]
  - Renal impairment [Recovering/Resolving]
  - Chromaturia [Recovering/Resolving]
  - Tenderness [Recovering/Resolving]
  - Asthenia [Recovering/Resolving]
